FAERS Safety Report 25163079 (Version 3)
Quarter: 2025Q2

REPORT INFORMATION
  Report Type: Spontaneous
  Country: US (occurrence: US)
  Receive Date: 20250404
  Receipt Date: 20250423
  Transmission Date: 20250716
  Serious: Yes (Hospitalization)
  Sender: PFIZER
  Company Number: US-PFIZER INC-202500034877

PATIENT
  Age: 79 Year
  Sex: Female

DRUGS (2)
  1. MEKTOVI [Suspect]
     Active Substance: BINIMETINIB
     Indication: Metastatic malignant melanoma
     Dosage: TAKE 3 TABLETS BY MOUTH 2 TIMES DAILY. TAKE DOSES ABOUT 10-12 HOURS APART.
     Route: 048
     Dates: end: 20250403
  2. BRAFTOVI [Suspect]
     Active Substance: ENCORAFENIB
     Indication: Metastatic malignant melanoma
     Dosage: TAKE 6 CAPSULES BY MOUTH
     Route: 048
     Dates: end: 20250403

REACTIONS (2)
  - Asthenia [Unknown]
  - Illness [Unknown]
